FAERS Safety Report 13921298 (Version 1)
Quarter: 2017Q3

REPORT INFORMATION
  Report Type: Spontaneous
  Country: JP (occurrence: JP)
  Receive Date: 20170830
  Receipt Date: 20170830
  Transmission Date: 20171127
  Serious: Yes (Other)
  Sender: FDA-Public Use
  Company Number: JP-PFIZER INC-2017368044

PATIENT
  Age: 41 Year
  Sex: Female

DRUGS (1)
  1. INLYTA [Suspect]
     Active Substance: AXITINIB
     Indication: METASTATIC RENAL CELL CARCINOMA
     Dosage: UNK
     Dates: start: 2014

REACTIONS (6)
  - Proteinuria [Unknown]
  - Hypertension [Unknown]
  - Hypothyroidism [Unknown]
  - Neoplasm progression [Unknown]
  - Acute kidney injury [Unknown]
  - Diarrhoea [Unknown]
